FAERS Safety Report 7070509-3 (Version None)
Quarter: 2010Q4

REPORT INFORMATION
  Report Type: 
  Country: None (occurrence: None)
  Receive Date: 20101029
  Receipt Date: 20101021
  Transmission Date: 20110411
  Serious: No
  Sender: FDA-Public Use
  Company Number: KR-JNJFOC-20101006214

PATIENT
  Age: 57 Year
  Sex: Male

DRUGS (4)
  1. DURAGESIC-100 [Suspect]
     Indication: PAIN MANAGEMENT
     Dosage: HALF PATCH USED
     Route: 062
  2. DURAGESIC-100 [Suspect]
     Route: 062
  3. DURAGESIC-100 [Suspect]
     Dosage: HALF PATCH USED
     Route: 062
  4. MOTILIUM M [Concomitant]
     Indication: NAUSEA
     Route: 048

REACTIONS (2)
  - NAUSEA [None]
  - WRONG TECHNIQUE IN DRUG USAGE PROCESS [None]
